FAERS Safety Report 5410761-0 (Version None)
Quarter: 2007Q3

REPORT INFORMATION
  Report Type: 
  Country: None (occurrence: None)
  Receive Date: 20070810
  Receipt Date: 20070308
  Transmission Date: 20080115
  Serious: No
  Sender: FDA-Public Use
  Company Number: A0642503A

PATIENT
  Sex: Female

DRUGS (1)
  1. PAXIL CR [Suspect]
     Dates: end: 20070305

REACTIONS (2)
  - NAUSEA [None]
  - PARAESTHESIA [None]
